FAERS Safety Report 9797094 (Version 1)
Quarter: 2014Q1

REPORT INFORMATION
  Report Type: Spontaneous
  Country: JP (occurrence: JP)
  Receive Date: 20140106
  Receipt Date: 20140106
  Transmission Date: 20141002
  Serious: Yes (Other)
  Sender: FDA-Public Use
  Company Number: PHHY2013JP153428

PATIENT
  Age: 48 Year
  Sex: Male

DRUGS (9)
  1. RIFAMPICIN SANDOZ [Suspect]
     Indication: TUBERCULOSIS
     Dosage: 750 MG, DAILY
     Route: 048
     Dates: start: 20130930, end: 20131109
  2. RIFAMPICIN SANDOZ [Suspect]
     Dosage: 750 MG, DAILY
     Route: 048
     Dates: start: 20131205, end: 20131214
  3. ETHAMBUTOL [Suspect]
     Indication: TUBERCULOSIS
     Dosage: 1000 MG, DAILY
     Route: 048
     Dates: start: 20130930, end: 20131109
  4. ETHAMBUTOL [Suspect]
     Dosage: 1000 MG, DAILY
     Route: 048
     Dates: start: 20131202, end: 20131214
  5. ISCOTIN [Concomitant]
     Indication: TUBERCULOSIS
     Dosage: 50 MG, UNK
     Route: 048
     Dates: start: 20130930, end: 20131109
  6. PYRAMIDE [Concomitant]
     Indication: TUBERCULOSIS
     Route: 048
     Dates: start: 20130930, end: 20131109
  7. PYRAMIDE [Concomitant]
     Route: 048
     Dates: start: 20131202, end: 20131214
  8. PYDOXAL [Concomitant]
     Indication: TUBERCULOSIS
     Route: 048
     Dates: start: 20130930, end: 20131109
  9. CRAVIT [Concomitant]
     Indication: TUBERCULOSIS
     Route: 048
     Dates: start: 20131202, end: 20131214

REACTIONS (2)
  - Pneumonia [Recovered/Resolved]
  - Suffocation feeling [Recovered/Resolved]
